FAERS Safety Report 9954299 (Version 2)
Quarter: 2014Q1

REPORT INFORMATION
  Report Type: Report from Study
  Country: US (occurrence: US)
  Receive Date: 20140304
  Receipt Date: 20140304
  Transmission Date: 20141002
  Serious: Yes (Other)
  Sender: FDA-Public Use
  Company Number: US-ABBVIE-12P-163-0980475-00

PATIENT
  Age: 64 Year
  Sex: Male
  Weight: 79.83 kg

DRUGS (1)
  1. HUMIRA [Suspect]
     Indication: ANKYLOSING SPONDYLITIS
     Route: 058
     Dates: start: 201201

REACTIONS (1)
  - Myocardial infarction [Unknown]
